FAERS Safety Report 10012972 (Version 1)
Quarter: 2014Q1

REPORT INFORMATION
  Report Type: Report from Study
  Country: US (occurrence: US)
  Receive Date: 20140314
  Receipt Date: 20140314
  Transmission Date: 20141002
  Serious: Yes (Other)
  Sender: FDA-Public Use
  Company Number: US-ABBVIE-14P-163-1210788-00

PATIENT
  Age: 45 Year
  Sex: Female

DRUGS (5)
  1. HUMIRA [Suspect]
     Indication: CROHN^S DISEASE
     Route: 058
     Dates: start: 201310
  2. FOLIC ACID [Concomitant]
     Indication: PRODUCT USED FOR UNKNOWN INDICATION
  3. B-12 [Concomitant]
     Indication: PRODUCT USED FOR UNKNOWN INDICATION
  4. MERCAPTOPURINE [Concomitant]
     Indication: PRODUCT USED FOR UNKNOWN INDICATION
  5. VICODIN [Concomitant]
     Indication: PRODUCT USED FOR UNKNOWN INDICATION

REACTIONS (4)
  - Loss of consciousness [Recovered/Resolved]
  - Feeling hot [Recovered/Resolved]
  - Hyperhidrosis [Recovered/Resolved]
  - Fall [Recovered/Resolved]
